FAERS Safety Report 7668433-8 (Version None)
Quarter: 2011Q3

REPORT INFORMATION
  Report Type: 
  Country: None (occurrence: None)
  Receive Date: 20110808
  Receipt Date: 20110804
  Transmission Date: 20111222
  Serious: Yes (Other)
  Sender: FDA-Public Use
  Company Number: US-PFIZER INC-2011109615

PATIENT
  Sex: Male
  Weight: 74.83 kg

DRUGS (17)
  1. VIRACEPT [Suspect]
     Indication: LENTIVIRUS TEST POSITIVE
     Dosage: 625 MG, 4X/DAY
     Route: 048
     Dates: start: 19990101
  2. AMITRIPTYLINE [Concomitant]
     Dosage: UNK
  3. ACETYLSALICYLIC ACID [Concomitant]
     Dosage: 81 MG, UNK
  4. COMBIVIR [Suspect]
     Indication: LENTIVIRUS TEST POSITIVE
     Dosage: 150/300 MG, 2X/DAY
     Route: 048
     Dates: start: 19991101
  5. HYDROCODONE [Concomitant]
  6. COMBIVIR [Suspect]
     Indication: HIV INFECTION
  7. PRENATAL VITAMINS [Concomitant]
     Dosage: UNK
  8. INDOMETHACIN [Concomitant]
     Dosage: UNK
  9. FISH OIL [Concomitant]
     Dosage: 2000 MG, UNK
  10. DIOVAN [Concomitant]
     Indication: HYPERTENSION
     Dosage: UNK
  11. ZOLPIDEM [Concomitant]
     Dosage: UNK
  12. CALCIUM CARBONATE/COLECALCIFEROL [Concomitant]
     Dosage: 1000 MG, UNK
  13. NEXIUM [Concomitant]
  14. DILTIAZEM [Concomitant]
     Indication: HEART RATE IRREGULAR
     Dosage: UNK
  15. PRAVASTATIN [Concomitant]
  16. VITAMIN D [Concomitant]
     Dosage: UNK
  17. TAMSULOSIN [Concomitant]
     Dosage: UNK

REACTIONS (2)
  - GASTROOESOPHAGEAL REFLUX DISEASE [None]
  - HEPATIC ENZYME INCREASED [None]
